FAERS Safety Report 7603901-6 (Version None)
Quarter: 2011Q3

REPORT INFORMATION
  Report Type: 
  Country: None (occurrence: None)
  Receive Date: 20110712
  Receipt Date: 20110627
  Transmission Date: 20111222
  Serious: Yes (Other)
  Sender: FDA-Public Use
  Company Number: IT-WATSON-2011-09945

PATIENT
  Age: 68 Year
  Sex: Female

DRUGS (2)
  1. DULOXETIME HYDROCHLORIDE [Suspect]
     Indication: STRESS URINARY INCONTINENCE
     Route: 048
  2. OMEPRAZOLE [Suspect]
     Indication: GASTROOESOPHAGEAL REFLUX DISEASE
     Route: 048

REACTIONS (2)
  - STRESS CARDIOMYOPATHY [None]
  - DRUG INTERACTION [None]
